FAERS Safety Report 12837243 (Version 1)
Quarter: 2016Q4

REPORT INFORMATION
  Report Type: Spontaneous
  Country: US (occurrence: US)
  Receive Date: 20161009
  Receipt Date: 20161009
  Transmission Date: 20170207
  Serious: Yes (Other)
  Sender: FDA-Public Use
  Company Number: None

PATIENT
  Age: 7 Month
  Sex: Male
  Weight: 25 kg

DRUGS (1)
  1. VYVANSE [Suspect]
     Active Substance: LISDEXAMFETAMINE DIMESYLATE
     Indication: ATTENTION DEFICIT/HYPERACTIVITY DISORDER
     Dosage: ?          QUANTITY:1 CAPSULE(S);?
     Route: 048
     Dates: start: 20160924, end: 20160924

REACTIONS (13)
  - Somnolence [None]
  - Stupor [None]
  - Grimacing [None]
  - Unresponsive to stimuli [None]
  - Dyskinesia [None]
  - Hypotonia [None]
  - Cognitive disorder [None]
  - Feeling abnormal [None]
  - Depressed level of consciousness [None]
  - Strabismus [None]
  - Altered state of consciousness [None]
  - Tic [None]
  - Visual impairment [None]

NARRATIVE: CASE EVENT DATE: 20160924
